FAERS Safety Report 15196267 (Version 2)
Quarter: 2018Q3

REPORT INFORMATION
  Report Type: Spontaneous
  Country: US (occurrence: US)
  Receive Date: 20180725
  Receipt Date: 20180824
  Transmission Date: 20181010
  Serious: No
  Sender: FDA-Public Use
  Company Number: US-ALKERMES INC.-ALK-2018-003593

PATIENT
  Age: 23 Year
  Sex: Male
  Weight: 49.89 kg

DRUGS (1)
  1. ARISTADA [Suspect]
     Active Substance: ARIPIPRAZOLE LAUROXIL
     Indication: PRODUCT USED FOR UNKNOWN INDICATION
     Dosage: 441 MG, QMO
     Route: 030

REACTIONS (2)
  - Drug administration error [Unknown]
  - Underdose [Unknown]

NARRATIVE: CASE EVENT DATE: 20180705
